FAERS Safety Report 8062368-7 (Version None)
Quarter: 2012Q1

REPORT INFORMATION
  Report Type: 
  Country: None (occurrence: None)
  Receive Date: 20120123
  Receipt Date: 20120110
  Transmission Date: 20120608
  Serious: Yes (Other)
  Sender: FDA-Public Use
  Company Number: JP-ELI_LILLY_AND_COMPANY-JP201201001532

PATIENT
  Age: 78 Year
  Sex: Female

DRUGS (10)
  1. OLMESARTAN MEDOXOMIL [Concomitant]
     Indication: HYPERTENSION
     Dosage: UNK
  2. CLINORIL [Concomitant]
  3. RABEPRAZOLE SODIUM [Concomitant]
     Dosage: UNK
  4. ALFAROL [Concomitant]
     Dosage: UNK
  5. FORTEO [Suspect]
     Dosage: UNK
     Route: 058
     Dates: start: 20111225
  6. PREDNISOLONE [Concomitant]
     Dosage: UNK
  7. HYDROCHLOROTHIAZIDE [Concomitant]
     Indication: HYPERTENSION
     Dosage: UNK
  8. NEUROTROPIN [Concomitant]
     Dosage: UNK
     Dates: start: 20111223
  9. DEPAS [Concomitant]
     Dosage: UNK
  10. LYRICA [Concomitant]
     Dosage: UNK
     Route: 048
     Dates: start: 20111223

REACTIONS (6)
  - BEDRIDDEN [None]
  - DIZZINESS [None]
  - HEPATITIS [None]
  - TERMINAL DRIBBLING [None]
  - FEELING ABNORMAL [None]
  - FEELING HOT [None]
